FAERS Safety Report 5352911-0 (Version None)
Quarter: 2007Q2

REPORT INFORMATION
  Report Type: 
  Country: None (occurrence: None)
  Receive Date: 20070611
  Receipt Date: 20070604
  Transmission Date: 20071010
  Serious: Yes (Hospitalization)
  Sender: FDA-Public Use
  Company Number: FR-PFIZER INC-2007046060

PATIENT
  Age: 8 Year
  Sex: Male
  Weight: 26 kg

DRUGS (9)
  1. SOLU-MEDROL [Suspect]
     Indication: LYMPHOMA
     Route: 042
  2. ASPARAGINASE [Suspect]
     Indication: LYMPHOMA
     Route: 042
     Dates: start: 20070407, end: 20070420
  3. DAUNORUBICIN HCL [Suspect]
     Indication: LYMPHOMA
     Route: 042
     Dates: start: 20070404, end: 20070425
  4. OMEPRAZOLE [Suspect]
     Route: 048
  5. VINCRISTINE [Suspect]
     Indication: LYMPHOMA
     Route: 042
     Dates: start: 20070404, end: 20070425
  6. METHOTREXATE [Suspect]
     Indication: LYMPHOMA
     Route: 042
     Dates: start: 20070405, end: 20070405
  7. ENOXAPARIN SODIUM [Concomitant]
  8. ERGOCALCIFEROL [Concomitant]
  9. CALCIUM CHLORIDE [Concomitant]

REACTIONS (2)
  - CARDIAC MURMUR [None]
  - CARDIOMYOPATHY [None]
